FAERS Safety Report 20817398 (Version 1)
Quarter: 2022Q2

REPORT INFORMATION
  Report Type: Spontaneous
  Country: BR (occurrence: BR)
  Receive Date: 20220512
  Receipt Date: 20220512
  Transmission Date: 20220721
  Serious: Yes (Other)
  Sender: FDA-Public Use
  Company Number: BR-CIPLA LTD.-2022BR03058

PATIENT

DRUGS (5)
  1. ZIDOVUDINE [Suspect]
     Active Substance: ZIDOVUDINE
     Indication: Antiretroviral therapy
     Dosage: UNK, (1 COURSE)
     Route: 065
  2. DARUNAVIR [Suspect]
     Active Substance: DARUNAVIR
     Indication: Antiretroviral therapy
     Dosage: 1200 UNK (1 COURSE)
     Route: 048
  3. DOLUTEGRAVIR [Suspect]
     Active Substance: DOLUTEGRAVIR
     Indication: Antiretroviral therapy
     Dosage: 100 UNK, (1 COURSE)
     Route: 048
  4. RITONAVIR [Suspect]
     Active Substance: RITONAVIR
     Indication: Antiretroviral therapy
     Dosage: 200 UNK, (1 COURSE)
     Route: 048
  5. FOSTEMSAVIR [Suspect]
     Active Substance: FOSTEMSAVIR
     Indication: Antiretroviral therapy
     Dosage: 1200 UNK, (1 COURSE)
     Route: 048

REACTIONS (2)
  - Premature delivery [Unknown]
  - Exposure during pregnancy [Unknown]

NARRATIVE: CASE EVENT DATE: 20201117
